FAERS Safety Report 8149062-9 (Version None)
Quarter: 2012Q1

REPORT INFORMATION
  Report Type: 
  Country: None (occurrence: None)
  Receive Date: 20120218
  Receipt Date: 20110822
  Transmission Date: 20120608
  Serious: No
  Sender: FDA-Public Use
  Company Number: US-ALLERGAN-1111264US

PATIENT
  Age: 53 Year
  Sex: Female

DRUGS (6)
  1. BOTOX COSMETIC [Suspect]
     Indication: SKIN WRINKLING
     Dosage: 30 UNITS, SINGLE
     Route: 030
     Dates: start: 20110818, end: 20110818
  2. RETIN-A [Concomitant]
     Dosage: UNK
  3. VALTREX [Concomitant]
     Dosage: UNK
  4. METROGEL [Concomitant]
     Dosage: UNK
  5. MOBIC [Concomitant]
     Dosage: UNK
  6. ZANTAC                             /00550801/ [Concomitant]
     Dosage: UNK

REACTIONS (3)
  - NASAL OBSTRUCTION [None]
  - DYSPNOEA [None]
  - INTRANASAL HYPOAESTHESIA [None]
